FAERS Safety Report 20448184 (Version 1)
Quarter: 2022Q1

REPORT INFORMATION
  Report Type: Spontaneous
  Country: KZ (occurrence: KZ)
  Receive Date: 20220209
  Receipt Date: 20220209
  Transmission Date: 20220423
  Serious: Yes (Other)
  Sender: FDA-Public Use
  Company Number: KZ-AUROBINDO-AUR-APL-2022-002874

PATIENT
  Age: 41 Year
  Sex: Male

DRUGS (2)
  1. EFAVIRENZ\EMTRICITABINE\TENOFOVIR DISOPROXIL FUMARATE [Suspect]
     Active Substance: EFAVIRENZ\EMTRICITABINE\TENOFOVIR DISOPROXIL FUMARATE
     Indication: HIV infection
     Dosage: UNK
     Dates: start: 20210505, end: 20211205
  2. DOLUTEGRAVIR [Concomitant]
     Active Substance: DOLUTEGRAVIR
     Indication: HIV infection
     Dosage: 50 MILLIGRAM
     Route: 065
     Dates: start: 20210505

REACTIONS (5)
  - Poisoning [Recovering/Resolving]
  - Musculoskeletal disorder [Recovering/Resolving]
  - Connective tissue disorder [Recovering/Resolving]
  - Injury [Recovering/Resolving]
  - Procedural complication [Recovering/Resolving]
